FAERS Safety Report 5722961-0 (Version None)
Quarter: 2008Q2

REPORT INFORMATION
  Report Type: 
  Country: None (occurrence: None)
  Receive Date: 20080430
  Receipt Date: 20080428
  Transmission Date: 20081010
  Serious: Yes (Hospitalization)
  Sender: FDA-Public Use
  Company Number: ES-BRISTOL-MYERS SQUIBB COMPANY-13682653

PATIENT
  Age: 69 Year
  Sex: Male

DRUGS (8)
  1. CISPLATIN [Suspect]
     Indication: METASTATIC GASTRIC CANCER
     Route: 041
     Dates: start: 20060720, end: 20060720
  2. FLUOROURACIL [Suspect]
     Indication: METASTATIC GASTRIC CANCER
     Route: 041
     Dates: start: 20060720, end: 20060725
  3. COZAAR [Concomitant]
     Indication: HYPERTENSION
     Route: 048
     Dates: start: 20000101
  4. ORFIDAL [Concomitant]
     Indication: INSOMNIA
     Route: 048
     Dates: start: 20060327
  5. OMEPRAZOLE [Concomitant]
     Indication: PROPHYLAXIS
     Route: 048
     Dates: start: 20060327
  6. MST [Concomitant]
     Indication: PAIN
     Route: 048
     Dates: start: 20060607
  7. SEVREDOL [Concomitant]
     Indication: PAIN
     Route: 048
     Dates: start: 20060614, end: 20060803
  8. DIFLUCAN [Concomitant]
     Indication: MUCOSAL INFLAMMATION
     Route: 048
     Dates: start: 20060731, end: 20060803

REACTIONS (3)
  - FEBRILE NEUTROPENIA [None]
  - PANCYTOPENIA [None]
  - STOMATITIS [None]
